FAERS Safety Report 5040601-3 (Version None)
Quarter: 2006Q2

REPORT INFORMATION
  Report Type: 
  Country: None (occurrence: None)
  Receive Date: 20060630
  Receipt Date: 20060627
  Transmission Date: 20061013
  Serious: Yes (Life-Threatening, Hospitalization)
  Sender: FDA-Public Use
  Company Number: DE-BOEHRINGER INGELHEIM PHARMACEUTICALS, INC.-2006-BP-07508YA

PATIENT
  Sex: Male

DRUGS (7)
  1. TAMSULOSIN OCAS [Suspect]
     Indication: MICTURITION DISORDER
     Route: 048
     Dates: start: 20060411
  2. SPIRIVA [Concomitant]
     Dates: start: 20060420
  3. SYMBICORT [Concomitant]
     Dates: start: 20060420
  4. BELOC ZOK [Concomitant]
  5. QUADROPRIL [Concomitant]
  6. BRONCHO (SALBUTAMOL SULFATE) [Concomitant]
  7. MAXALT (RIZATRIPTAN) [Concomitant]

REACTIONS (2)
  - BONE MARROW DISORDER [None]
  - PANCYTOPENIA [None]
